FAERS Safety Report 22161034 (Version 1)
Quarter: 2023Q1

REPORT INFORMATION
  Report Type: Spontaneous
  Country: US (occurrence: US)
  Receive Date: 20230331
  Receipt Date: 20230331
  Transmission Date: 20230418
  Serious: Yes (Hospitalization)
  Sender: FDA-Public Use
  Company Number: US-ABBVIE-4711596

PATIENT
  Sex: Female

DRUGS (1)
  1. HUMIRA [Suspect]
     Active Substance: ADALIMUMAB
     Indication: Product used for unknown indication
     Dosage: 40MG
     Route: 058
     Dates: start: 2021

REACTIONS (10)
  - Emergency care [Unknown]
  - Urticaria [Unknown]
  - Injection site reaction [Unknown]
  - Diarrhoea [Unknown]
  - Illness [Unknown]
  - Attention deficit hyperactivity disorder [Unknown]
  - Vomiting [Unknown]
  - Eczema [Unknown]
  - Fatigue [Unknown]
  - Nodule [Unknown]
